FAERS Safety Report 4532765-2 (Version None)
Quarter: 2004Q4

REPORT INFORMATION
  Report Type: 
  Country: None (occurrence: None)
  Receive Date: 20041206
  Receipt Date: 20040930
  Transmission Date: 20050328
  Serious: No
  Sender: FDA-Public Use
  Company Number: USA040979710

PATIENT
  Sex: Female

DRUGS (5)
  1. CYMBALTA [Suspect]
     Indication: DEPRESSION
     Dosage: 30 MG/ 1DAY
     Dates: start: 20040825
  2. PROZAC [Suspect]
  3. SYNTHROID [Concomitant]
  4. XANAX [Concomitant]
  5. PRILOSEC (OMEPRAZOLE RATIOPHARM) [Concomitant]

REACTIONS (3)
  - DRY MOUTH [None]
  - FATIGUE [None]
  - SOMNOLENCE [None]
